FAERS Safety Report 12529419 (Version 2)
Quarter: 2016Q3

REPORT INFORMATION
  Report Type: Spontaneous
  Country: DE (occurrence: DE)
  Receive Date: 20160706
  Receipt Date: 20160726
  Transmission Date: 20161109
  Serious: Yes (Other)
  Sender: FDA-Public Use
  Company Number: DE-ROCHE-1788520

PATIENT
  Age: 49 Year
  Sex: Female
  Weight: 55 kg

DRUGS (10)
  1. KADCYLA [Suspect]
     Active Substance: ADO-TRASTUZUMAB EMTANSINE
     Indication: PRODUCT USED FOR UNKNOWN INDICATION
     Route: 065
     Dates: start: 20140415, end: 20160606
  2. CROTALUS [Concomitant]
     Dosage: C6
     Route: 048
     Dates: start: 2014
  3. HEPAR SL [Concomitant]
     Route: 048
  4. PROPOLIS [Concomitant]
     Active Substance: PROPOLIS WAX
     Route: 048
     Dates: start: 2014
  5. CLARITHROMYCIN. [Concomitant]
     Active Substance: CLARITHROMYCIN
     Indication: ANGINA PECTORIS
     Route: 048
     Dates: start: 20160613, end: 20160619
  6. HEPA-MERZ (GERMANY) [Concomitant]
     Route: 048
  7. HELIXOR A [Concomitant]
     Route: 058
     Dates: start: 201406
  8. CORIOLUS [Concomitant]
     Route: 048
     Dates: start: 2014
  9. SILYMARIN [Concomitant]
     Active Substance: MILK THISTLE
     Route: 048
     Dates: start: 2014
  10. NOVAMINSULFON [Concomitant]
     Active Substance: METAMIZOLE
     Indication: ANGINA PECTORIS
     Route: 048
     Dates: start: 20160613, end: 20160626

REACTIONS (4)
  - Aspartate aminotransferase increased [Recovering/Resolving]
  - Gamma-glutamyltransferase increased [Recovering/Resolving]
  - Alanine aminotransferase increased [Recovering/Resolving]
  - Blood alkaline phosphatase increased [Recovering/Resolving]

NARRATIVE: CASE EVENT DATE: 20160607
